FAERS Safety Report 15466432 (Version 2)
Quarter: 2021Q3

REPORT INFORMATION
  Report Type: Spontaneous
  Country: AU (occurrence: AU)
  Receive Date: 20181004
  Receipt Date: 20210820
  Transmission Date: 20211014
  Serious: Yes (Death, Other)
  Sender: FDA-Public Use
  Company Number: AU-INDIVIOR LIMITED-INDV-114458-2018

PATIENT
  Age: 38 Year
  Sex: Male

DRUGS (10)
  1. BUPRENORPHINE. [Suspect]
     Active Substance: BUPRENORPHINE
     Dosage: SECOND DOSE OF 8 MG
     Route: 065
     Dates: start: 20150403, end: 20150403
  2. SEROQUEL [Suspect]
     Active Substance: QUETIAPINE FUMARATE
     Indication: DEPRESSION
  3. SEROQUEL [Suspect]
     Active Substance: QUETIAPINE FUMARATE
     Indication: EMOTIONAL DISTRESS
     Dosage: UNK
     Route: 065
  4. AVANZA [Suspect]
     Active Substance: MIRTAZAPINE
     Indication: DEPRESSION
  5. BUPRENORPHINE. [Suspect]
     Active Substance: BUPRENORPHINE
     Dosage: THIRD DOSE OF 8 MG
     Route: 065
     Dates: start: 20150404, end: 20180404
  6. AVANZA [Suspect]
     Active Substance: MIRTAZAPINE
     Indication: EMOTIONAL DISTRESS
     Dosage: UNK
     Route: 065
  7. AVANZA [Suspect]
     Active Substance: MIRTAZAPINE
     Indication: ANXIETY
  8. BUPRENORPHINE. [Suspect]
     Active Substance: BUPRENORPHINE
     Indication: DRUG DEPENDENCE
     Dosage: FIRST DOSE OF 4 MG
     Route: 065
     Dates: start: 20150403, end: 20150403
  9. DIAZEPAM. [Suspect]
     Active Substance: DIAZEPAM
     Indication: ALCOHOL WITHDRAWAL SYNDROME
     Dosage: UNK
     Route: 065
     Dates: start: 20150402, end: 20150404
  10. SEROQUEL [Suspect]
     Active Substance: QUETIAPINE FUMARATE
     Indication: ANXIETY

REACTIONS (5)
  - Respiratory depression [Fatal]
  - Somnolence [Unknown]
  - Prescribed overdose [Fatal]
  - Toxicity to various agents [Fatal]
  - Miosis [Recovered/Resolved]

NARRATIVE: CASE EVENT DATE: 20150403
